FAERS Safety Report 4554171-7 (Version None)
Quarter: 2005Q1

REPORT INFORMATION
  Report Type: 
  Country: None (occurrence: None)
  Receive Date: 20050113
  Receipt Date: 20050113
  Transmission Date: 20050727
  Serious: Yes (Hospitalization)
  Sender: FDA-Public Use
  Company Number: None

PATIENT
  Age: 57 Year
  Sex: Male
  Weight: 60.8 kg

DRUGS (7)
  1. DOCETAXEL 20MG/M2 AVENTIS [Suspect]
     Indication: NON-SMALL CELL LUNG CANCER
     Dosage: 37 MG/IV
     Route: 042
     Dates: start: 20041012, end: 20041124
  2. CARBOPLATIN [Suspect]
     Indication: NON-SMALL CELL LUNG CANCER
     Dosage: 260 MG/IV
     Route: 042
     Dates: start: 20041012, end: 20041124
  3. LORTAB [Concomitant]
  4. ALBUTEROL NDI [Concomitant]
  5. PHENERGHEN [Concomitant]
  6. DOCETAXEL [Concomitant]
  7. CARBOPLATIN [Concomitant]

REACTIONS (1)
  - PNEUMONIA [None]
